FAERS Safety Report 16410940 (Version 3)
Quarter: 2019Q3

REPORT INFORMATION
  Report Type: Spontaneous
  Country: HR (occurrence: HR)
  Receive Date: 20190610
  Receipt Date: 20190711
  Transmission Date: 20191004
  Serious: Yes (Other)
  Sender: FDA-Public Use
  Company Number: HR-JNJFOC-20190606474

PATIENT
  Age: 29 Month
  Sex: Male

DRUGS (2)
  1. HALDOL [Suspect]
     Active Substance: HALOPERIDOL
     Indication: PRODUCT USED FOR UNKNOWN INDICATION
     Route: 065
     Dates: start: 20190310, end: 20190310
  2. HALOPERIDOL. [Suspect]
     Active Substance: HALOPERIDOL
     Indication: PRODUCT USED FOR UNKNOWN INDICATION
     Route: 048
     Dates: start: 20190310, end: 20190310

REACTIONS (5)
  - Muscle rigidity [Unknown]
  - Sluggishness [Unknown]
  - Hypotonia [Unknown]
  - Accidental exposure to product by child [Unknown]
  - Drooling [Unknown]

NARRATIVE: CASE EVENT DATE: 20190310
